FAERS Safety Report 25635969 (Version 1)
Quarter: 2025Q3

REPORT INFORMATION
  Report Type: Spontaneous
  Country: US (occurrence: US)
  Receive Date: 20250803
  Receipt Date: 20250803
  Transmission Date: 20251020
  Serious: No
  Sender: SANOFI AVENTIS
  Company Number: US-SA-2025SA221838

PATIENT
  Sex: Male

DRUGS (3)
  1. DUPIXENT [Suspect]
     Active Substance: DUPILUMAB
     Indication: Drug therapy
     Dosage: 200 MG, Q4W
     Route: 058
  2. Famotidine Akri [Concomitant]
     Route: 065
  3. HYDROCORTISONE [Concomitant]
     Active Substance: HYDROCORTISONE

REACTIONS (1)
  - Product use in unapproved indication [Unknown]
